FAERS Safety Report 9789397 (Version 1)
Quarter: 2013Q4

REPORT INFORMATION
  Report Type: Report from Study
  Country: DE (occurrence: DE)
  Receive Date: 20131231
  Receipt Date: 20131231
  Transmission Date: 20140711
  Serious: Yes (Hospitalization)
  Sender: FDA-Public Use
  Company Number: DE-ABBVIE-13P-062-1181733-00

PATIENT
  Age: 38 Year
  Sex: Female

DRUGS (5)
  1. HUMIRA [Suspect]
     Indication: RHEUMATOID ARTHRITIS
     Route: 058
     Dates: start: 20111118, end: 20130718
  2. HUMIRA [Suspect]
     Dates: start: 20130728
  3. PREDNISOLONE [Concomitant]
     Indication: RHEUMATOID ARTHRITIS
     Dosage: ONCE
     Dates: start: 20130821, end: 20130821
  4. PREDNISOLONE [Concomitant]
     Dosage: ONCE
     Dates: start: 20130822, end: 20130822
  5. PREDNISOLONE [Concomitant]
     Dates: start: 20130923

REACTIONS (4)
  - Rehabilitation therapy [Unknown]
  - Tenosynovitis [Recovered/Resolved]
  - Rheumatoid arthritis [Recovered/Resolved]
  - Influenza like illness [Recovered/Resolved]
